FAERS Safety Report 13781442 (Version 1)
Quarter: 2017Q3

REPORT INFORMATION
  Report Type: Spontaneous
  Country: US (occurrence: US)
  Receive Date: 20170723
  Receipt Date: 20170723
  Transmission Date: 20171127
  Serious: Yes (Hospitalization)
  Sender: FDA-Public Use
  Company Number: None

PATIENT
  Age: 66 Year
  Sex: Male

DRUGS (1)
  1. ATORVASTATIN [Suspect]
     Active Substance: ATORVASTATIN
     Indication: HYPERLIPIDAEMIA
     Dosage: 40 MG AT BEDTIME PO
     Route: 048
     Dates: start: 20130820, end: 20170504

REACTIONS (2)
  - Rhabdomyolysis [None]
  - Necrotising myositis [None]

NARRATIVE: CASE EVENT DATE: 20170325
